FAERS Safety Report 4558912-4 (Version None)
Quarter: 2005Q1

REPORT INFORMATION
  Report Type: 
  Country: None (occurrence: None)
  Receive Date: 20050119
  Receipt Date: 20041208
  Transmission Date: 20050727
  Serious: Yes (Other)
  Sender: FDA-Public Use
  Company Number: USA-04-0252-STR

PATIENT
  Age: 51 Year
  Sex: Male
  Weight: 59.8748 kg

DRUGS (1)
  1. STRIANT [Suspect]
     Indication: BLOOD TESTOSTERONE DECREASED
     Dosage: 2 BUCCAL SYSTEMS DAILY

REACTIONS (5)
  - BLOOD PRESSURE INCREASED [None]
  - BURNING SENSATION [None]
  - HEADACHE [None]
  - OROPHARYNGEAL SWELLING [None]
  - PAIN [None]
